FAERS Safety Report 17219194 (Version 1)
Quarter: 2019Q4

REPORT INFORMATION
  Report Type: Report from Study
  Country: MX (occurrence: MX)
  Receive Date: 20191231
  Receipt Date: 20191231
  Transmission Date: 20200122
  Serious: Yes (Other)
  Sender: FDA-Public Use
  Company Number: NVSC2019MX071238

PATIENT
  Sex: Male
  Weight: 88 kg

DRUGS (2)
  1. EXFORGE HCT [Suspect]
     Active Substance: AMLODIPINE BESYLATE\HYDROCHLOROTHIAZIDE\VALSARTAN
     Indication: HYPERTENSION
     Dosage: 1 DF, QD (AMLODIPINE 10 MG, HYDROCHOLROTHIAZIDE 25 MG, VALSARTAN 320 MG) (3 YEARS AGO APPROXIMATELY)
     Route: 048
  2. INSULIN [Concomitant]
     Active Substance: INSULIN NOS
     Indication: DIABETES MELLITUS
     Dosage: 35 IU (25UI IN THE MORNING AND 10 UI AT NIGHT) (10 YEARS AGO)
     Route: 065

REACTIONS (5)
  - Back pain [Unknown]
  - Blood creatinine increased [Unknown]
  - Intervertebral disc protrusion [Unknown]
  - Muscle spasms [Not Recovered/Not Resolved]
  - Blood urea increased [Recovering/Resolving]
